FAERS Safety Report 14405484 (Version 4)
Quarter: 2019Q1

REPORT INFORMATION
  Report Type: Spontaneous
  Country: US (occurrence: US)
  Receive Date: 20180118
  Receipt Date: 20190327
  Transmission Date: 20190417
  Serious: No
  Sender: FDA-Public Use
  Company Number: US-PFIZER INC-2018021014

PATIENT
  Age: 69 Year
  Sex: Male

DRUGS (1)
  1. INSPRA [Suspect]
     Active Substance: EPLERENONE
     Indication: GYNAECOMASTIA
     Dosage: 25 MG, UNK
     Dates: end: 201801

REACTIONS (4)
  - Product use in unapproved indication [Unknown]
  - Swelling [Recovered/Resolved]
  - Drug hypersensitivity [Unknown]
  - Malaise [Unknown]
